FAERS Safety Report 19690381 (Version 9)
Quarter: 2022Q3

REPORT INFORMATION
  Report Type: Spontaneous
  Country: US (occurrence: US)
  Receive Date: 20210812
  Receipt Date: 20220713
  Transmission Date: 20221026
  Serious: No
  Sender: FDA-Public Use
  Company Number: US-PFIZER INC-2021692359

PATIENT
  Age: 59 Year
  Sex: Female

DRUGS (2)
  1. IBRANCE [Suspect]
     Active Substance: PALBOCICLIB
     Indication: Breast cancer metastatic
     Dosage: 125 MG
  2. IBRANCE [Suspect]
     Active Substance: PALBOCICLIB
     Dosage: 100 MG, CYCLIC (21 CONSECUTIVE DAYS AND THEN 7 DAYS OFF)
     Dates: start: 202004

REACTIONS (7)
  - Vascular pain [Unknown]
  - Spinal pain [Unknown]
  - White blood cell count decreased [Unknown]
  - Insomnia [Unknown]
  - Night sweats [Unknown]
  - Fatigue [Unknown]
  - Abdominal pain upper [Unknown]
